FAERS Safety Report 16541528 (Version 1)
Quarter: 2019Q3

REPORT INFORMATION
  Report Type: Spontaneous
  Country: ES (occurrence: ES)
  Receive Date: 20190708
  Receipt Date: 20190708
  Transmission Date: 20191004
  Serious: Yes (Life-Threatening)
  Sender: FDA-Public Use
  Company Number: ES-NAPPMUNDI-GBR-2019-0067768

PATIENT
  Age: 51 Year
  Sex: Female
  Weight: 83 kg

DRUGS (2)
  1. OXYCONTIN [Suspect]
     Active Substance: OXYCODONE HYDROCHLORIDE
     Indication: PAIN
     Dosage: 1 COMPRIMIDO CADA 24 HORAS (STRENGTH 5MG)
     Route: 048
     Dates: start: 20190213, end: 20190608
  2. OXYCONTIN [Concomitant]
     Active Substance: OXYCODONE HYDROCHLORIDE
     Indication: PAIN
     Dosage: 1 COMPRIMIDO CADA 24 HORAS (STRENGTH 5MG)
     Dates: start: 20190206, end: 20190608

REACTIONS (4)
  - Chest discomfort [Not Recovered/Not Resolved]
  - Hyperhidrosis [Not Recovered/Not Resolved]
  - Tachycardia [Not Recovered/Not Resolved]
  - Asthenia [Not Recovered/Not Resolved]

NARRATIVE: CASE EVENT DATE: 20190508
